FAERS Safety Report 6492614-2 (Version None)
Quarter: 2009Q4

REPORT INFORMATION
  Report Type: 
  Country: None (occurrence: None)
  Receive Date: 20091214
  Receipt Date: 20091203
  Transmission Date: 20100525
  Serious: Yes (Other)
  Sender: FDA-Public Use
  Company Number: FR-ASTRAZENECA-2009SE30242

PATIENT
  Age: 35 Year
  Sex: Male

DRUGS (2)
  1. NEXIUM [Suspect]
     Indication: OESOPHAGITIS
     Route: 048
     Dates: start: 20091012, end: 20091025
  2. NEXIUM [Suspect]
     Route: 048
     Dates: start: 20091026, end: 20091115

REACTIONS (2)
  - MUSCULOSKELETAL CHEST PAIN [None]
  - MYALGIA [None]
